FAERS Safety Report 9822335 (Version 1)
Quarter: 2014Q1

REPORT INFORMATION
  Report Type: Spontaneous
  Country: FR (occurrence: None)
  Receive Date: 20140115
  Receipt Date: 20140115
  Transmission Date: 20141002
  Serious: Yes (Hospitalization)
  Sender: FDA-Public Use
  Company Number: DSM-2014-00021

PATIENT
  Age: 73 Year
  Sex: Female

DRUGS (12)
  1. ALTEIS DUO [Suspect]
     Indication: HYPERTENSION
     Route: 048
  2. LOXEN LP [Suspect]
     Indication: HYPERTENSION
     Route: 048
     Dates: end: 201308
  3. CELIPROLOL [Suspect]
     Indication: HYPERTENSION
     Route: 048
     Dates: end: 201308
  4. ATORVASTATINE (ATORVASTATIN) (ATORVASTATIN) [Concomitant]
  5. DEMPAMIDE (VALPROMIDE) (VALPROMIDE) [Concomitant]
  6. SPIRONOLACTONE (SPIRONOLACTONE) (SPIRONOLACTONE) [Concomitant]
  7. SERESTA (OXAZEPAM) (OXAZEPAM) [Concomitant]
  8. DI-HYDAN (PHENYTOIN) (PHENYTOIN) [Concomitant]
  9. HAVLANE (LOPRAZOLAM MESILATE) (LOPRAZOLAM MESILATE) [Concomitant]
  10. THERALENE (ALIMEMAZINE TARTRATE) (ALIMEMAZINE TARTRATE) [Concomitant]
  11. PROTHIADEN (DOSULEPIN HYDROCHLORIDE) (DOSULEPIN HYDROCHLORIDE) [Concomitant]
  12. CLOPIDOGREL (CLOPIDOGREL) (CLOPIDOGREL) [Concomitant]

REACTIONS (5)
  - Hypotension [None]
  - Fall [None]
  - Malaise [None]
  - Drug interaction [None]
  - Loss of consciousness [None]
